FAERS Safety Report 25853810 (Version 2)
Quarter: 2025Q4

REPORT INFORMATION
  Report Type: Spontaneous
  Country: CN (occurrence: CN)
  Receive Date: 20250926
  Receipt Date: 20251002
  Transmission Date: 20260118
  Serious: Yes (Other)
  Sender: PFIZER
  Company Number: CN-TAKEDA-2025TUS082837

PATIENT
  Age: 34 Year
  Sex: Female
  Weight: 50 kg

DRUGS (1)
  1. BRENTUXIMAB VEDOTIN [Suspect]
     Active Substance: BRENTUXIMAB VEDOTIN
     Indication: Lymphoma
     Dosage: 100 MILLIGRAM, QD
     Route: 041
     Dates: start: 20250829, end: 20250829

REACTIONS (2)
  - Cold sweat [Recovering/Resolving]
  - Chest discomfort [Recovering/Resolving]

NARRATIVE: CASE EVENT DATE: 20250829
